FAERS Safety Report 4971174-9 (Version None)
Quarter: 2006Q1

REPORT INFORMATION
  Report Type: 
  Country: None (occurrence: None)
  Receive Date: 20060222
  Receipt Date: 20060118
  Transmission Date: 20060701
  Serious: Yes (Other)
  Sender: FDA-Public Use
  Company Number: HQWYE450423JAN06

PATIENT
  Sex: Female

DRUGS (1)
  1. PROTONIX [Suspect]
     Dosage: 40 MG 1X PER 1 DAY, ORAL
     Route: 048
     Dates: start: 20051201, end: 20060101

REACTIONS (1)
  - NONSPECIFIC REACTION [None]
